FAERS Safety Report 9925390 (Version 2)
Quarter: 2014Q1

REPORT INFORMATION
  Report Type: Report from Study
  Country: BR (occurrence: BR)
  Receive Date: 20140226
  Receipt Date: 20140306
  Transmission Date: 20141002
  Serious: Yes (Disabling)
  Sender: FDA-Public Use
  Company Number: BR-BAYER-2014-028282

PATIENT
  Age: 41 Year
  Sex: Female

DRUGS (8)
  1. BETAFERON [Suspect]
     Indication: RELAPSING-REMITTING MULTIPLE SCLEROSIS
     Dosage: 1 ML, QOD
     Route: 058
     Dates: start: 200804
  2. VITAMINS [Concomitant]
  3. FLUOXETINE [Concomitant]
     Indication: DEPRESSION
     Dosage: 40 MG, BID
     Route: 048
     Dates: start: 1997
  4. RETEMIC [Concomitant]
     Indication: URINARY INCONTINENCE
     Dosage: 1 DF, BID
     Route: 048
     Dates: start: 2006
  5. VITAMIN D [Concomitant]
     Indication: MULTIPLE SCLEROSIS
     Dosage: 50 GTT, QD
     Route: 048
     Dates: start: 2013
  6. MANTIDAN [Concomitant]
     Indication: FATIGUE
     Dosage: 100 MG, PRN
     Route: 048
     Dates: start: 2008
  7. TOPIRAMATE [Concomitant]
     Indication: HEADACHE
     Dosage: 50 MG, QD
     Route: 048
     Dates: start: 2008
  8. TOPIRAMATE [Concomitant]
     Indication: AFFECTIVE DISORDER

REACTIONS (5)
  - Gait disturbance [Not Recovered/Not Resolved]
  - Tremor [Not Recovered/Not Resolved]
  - Balance disorder [Not Recovered/Not Resolved]
  - Fall [Recovered/Resolved]
  - Musculoskeletal chest pain [Not Recovered/Not Resolved]
